FAERS Safety Report 18283007 (Version 2)
Quarter: 2020Q3

REPORT INFORMATION
  Report Type: Spontaneous
  Country: US (occurrence: US)
  Receive Date: 20200918
  Receipt Date: 20200922
  Transmission Date: 20201103
  Serious: Yes (Other)
  Sender: FDA-Public Use
  Company Number: US-PFIZER INC-2020360220

PATIENT
  Age: 44 Year
  Sex: Male
  Weight: 87 kg

DRUGS (7)
  1. PALONOSETRON. [Concomitant]
     Active Substance: PALONOSETRON HYDROCHLORIDE
     Indication: PROPHYLAXIS OF NAUSEA AND VOMITING
     Dosage: 0.25 MG IV PUSH EVERY TWO WEEKS
     Route: 042
     Dates: start: 20190521
  2. 5 FU [Concomitant]
     Active Substance: FLUOROURACIL
     Indication: COLORECTAL CANCER
     Dosage: 400MG/MM2 INFUSED EVERY 2 WEEKS
     Dates: start: 20190521
  3. LEUCOVORIN [FOLINIC ACID] [Concomitant]
     Active Substance: LEUCOVORIN
     Indication: COLORECTAL CANCER
     Dosage: 400MG/MM2 INFUSED EVERY 2 WEEKS
     Dates: start: 20190521
  4. DECADRON [Concomitant]
     Active Substance: DEXAMETHASONE
     Indication: PROPHYLAXIS OF NAUSEA AND VOMITING
     Dosage: 10 MG INFUSED EVERY TWO WEEKS
     Dates: start: 20190521
  5. ATROPINE. [Concomitant]
     Active Substance: ATROPINE
     Dosage: 0.4 MG SUBCUTANEOUS ONCE EVERY 2 WEEKS
     Route: 058
     Dates: start: 20190521
  6. CAMPTOSAR [Suspect]
     Active Substance: IRINOTECAN HYDROCHLORIDE
     Indication: COLORECTAL CANCER
     Dosage: 180 MG/MM2 VIA INFUSION EVERY 2 WEEKS
  7. APREPITANT. [Concomitant]
     Active Substance: APREPITANT
     Indication: PROPHYLAXIS OF NAUSEA AND VOMITING
     Dosage: 130 MG INFUSED EVERY 2 WEEKS
     Dates: start: 20190521

REACTIONS (5)
  - Tremor [Recovered/Resolved]
  - Dysphagia [Recovered/Resolved]
  - Nausea [Unknown]
  - Muscular weakness [Unknown]
  - Asthenia [Recovering/Resolving]

NARRATIVE: CASE EVENT DATE: 202006
